FAERS Safety Report 16892491 (Version 1)
Quarter: 2019Q4

REPORT INFORMATION
  Report Type: Report from Study
  Country: CA (occurrence: CA)
  Receive Date: 20191007
  Receipt Date: 20191007
  Transmission Date: 20200122
  Serious: Yes (Other)
  Sender: FDA-Public Use
  Company Number: CA-JNJFOC-20190938209

PATIENT
  Age: 54 Year
  Sex: Female
  Weight: 65.1 kg

DRUGS (2)
  1. REMICADE [Suspect]
     Active Substance: INFLIXIMAB
     Indication: ANKYLOSING SPONDYLITIS
     Route: 042
     Dates: start: 20110714
  2. METHOTREXATE. [Concomitant]
     Active Substance: METHOTREXATE
     Route: 048

REACTIONS (4)
  - Hypertension [Unknown]
  - Oral herpes [Recovering/Resolving]
  - Carpal tunnel syndrome [Unknown]
  - Trigger finger [Recovering/Resolving]

NARRATIVE: CASE EVENT DATE: 20190912
